FAERS Safety Report 11881144 (Version 1)
Quarter: 2015Q4

REPORT INFORMATION
  Report Type: Spontaneous
  Country: US (occurrence: US)
  Receive Date: 20151231
  Receipt Date: 20151231
  Transmission Date: 20160305
  Serious: Yes (Hospitalization, Other)
  Sender: FDA-Public Use
  Company Number: US-B.I. PHARMACEUTICALS,INC./RIDGEFIELD-2015-BI-71882BP

PATIENT
  Age: 54 Year
  Sex: Male
  Weight: 49 kg

DRUGS (6)
  1. TOPAMAX [Concomitant]
     Active Substance: TOPIRAMATE
     Indication: PRODUCT USED FOR UNKNOWN INDICATION
     Route: 065
     Dates: start: 2005
  2. COUMADIN [Concomitant]
     Active Substance: WARFARIN SODIUM
     Indication: AORTIC ANASTOMOSIS
     Route: 065
     Dates: start: 1995
  3. CYCLOBENZAPRINE [Concomitant]
     Active Substance: CYCLOBENZAPRINE
     Indication: PRODUCT USED FOR UNKNOWN INDICATION
     Route: 065
     Dates: start: 2010
  4. DULCOLAX (BISACODYL) [Suspect]
     Active Substance: BISACODYL
     Indication: CONSTIPATION
     Dosage: 10 MG
     Route: 048
     Dates: start: 2013
  5. FERRITIN [Concomitant]
     Active Substance: FERRITIN
     Indication: PRODUCT USED FOR UNKNOWN INDICATION
     Route: 065
     Dates: start: 2005
  6. MORPHINE [Concomitant]
     Active Substance: MORPHINE
     Indication: SPINAL DEFORMITY
     Dosage: 90 MG
     Route: 048
     Dates: start: 2010

REACTIONS (6)
  - Ejection fraction decreased [Recovered/Resolved]
  - Weight decreased [Not Recovered/Not Resolved]
  - Medication error [Unknown]
  - Generalised tonic-clonic seizure [Unknown]
  - Generalised tonic-clonic seizure [Recovered/Resolved]
  - Depression [Not Recovered/Not Resolved]

NARRATIVE: CASE EVENT DATE: 2013
